FAERS Safety Report 5003185-1 (Version None)
Quarter: 2006Q2

REPORT INFORMATION
  Report Type: 
  Country: None (occurrence: None)
  Receive Date: 20060510
  Receipt Date: 20060504
  Transmission Date: 20061013
  Serious: Yes (Death, Other)
  Sender: FDA-Public Use
  Company Number: 200611423GDS

PATIENT
  Age: 50 Year
  Sex: Female
  Weight: 38 kg

DRUGS (43)
  1. APROTININ [Suspect]
     Indication: OPERATIVE HAEMORRHAGE
     Dosage: SEE IMAGE
     Route: 042
     Dates: start: 20060331
  2. APROTININ [Suspect]
     Indication: PREOPERATIVE CARE
     Dosage: SEE IMAGE
     Route: 042
     Dates: start: 20060331
  3. APROTININ [Suspect]
     Indication: OPERATIVE HAEMORRHAGE
     Dosage: SEE IMAGE
     Route: 042
     Dates: start: 20060331
  4. APROTININ [Suspect]
     Indication: PREOPERATIVE CARE
     Dosage: SEE IMAGE
     Route: 042
     Dates: start: 20060331
  5. APROTININ [Suspect]
     Indication: OPERATIVE HAEMORRHAGE
     Dosage: SEE IMAGE
     Route: 042
     Dates: start: 20060331
  6. APROTININ [Suspect]
     Indication: PREOPERATIVE CARE
     Dosage: SEE IMAGE
     Route: 042
     Dates: start: 20060331
  7. TRANSTEC [Concomitant]
  8. PANTOZOL [Concomitant]
  9. DOLZAM [Concomitant]
  10. PERDOLAN [Concomitant]
  11. EMCONCOR [Concomitant]
  12. ULTIVA [Concomitant]
  13. NIMBEX [Concomitant]
  14. DIPRIVAN [Concomitant]
  15. DESFLURANE [Concomitant]
  16. CEFAZOLIN [Concomitant]
  17. CATAPRES [Concomitant]
  18. PERFUSALGAN [Concomitant]
  19. LASIX [Concomitant]
  20. TILCOTIL [Concomitant]
  21. MORPHINE [Concomitant]
  22. SELOKEN [Concomitant]
  23. TRADONAL [Concomitant]
  24. NAROPIN [Concomitant]
  25. MORPHINE [Concomitant]
  26. HUMULINE REGULAR [Concomitant]
  27. LOSEC [Concomitant]
  28. DIPIDOLOR [Concomitant]
  29. CLEXANE [Concomitant]
  30. CEFACIDAL [Concomitant]
  31. CEDOCARD [Concomitant]
  32. LITICAN [Concomitant]
  33. NEXIUM [Concomitant]
  34. TAZOCIN [Concomitant]
  35. DOBUTREX [Concomitant]
  36. DIFLUCAN [Concomitant]
  37. XIGRIS [Concomitant]
  38. HARTMANN [Concomitant]
  39. GLUCOSE [Concomitant]
  40. PLASMA-LYTE A [Concomitant]
  41. GEOPLASMA [Concomitant]
  42. MAGNESIUMCHLORIDE [Concomitant]
  43. SELOKEN [Concomitant]

REACTIONS (19)
  - ACUTE RESPIRATORY DISTRESS SYNDROME [None]
  - ARTERIOSCLEROSIS CORONARY ARTERY [None]
  - BLOOD GLUCOSE FLUCTUATION [None]
  - CHEST PAIN [None]
  - DIALYSIS [None]
  - HEPATIC CONGESTION [None]
  - HYPOTENSION [None]
  - PNEUMONIA [None]
  - PNEUMONITIS [None]
  - POLYURIA [None]
  - PSEUDOMONAS INFECTION [None]
  - RENAL FAILURE [None]
  - RESPIRATORY FAILURE [None]
  - SEPSIS [None]
  - SPLEEN DISORDER [None]
  - SPLENIC INFARCTION [None]
  - SPUTUM CULTURE POSITIVE [None]
  - THROMBOSIS [None]
  - VASCULITIS [None]
